FAERS Safety Report 4530158-5 (Version None)
Quarter: 2004Q4

REPORT INFORMATION
  Report Type: 
  Country: None (occurrence: None)
  Receive Date: 20041215
  Receipt Date: 20041215
  Transmission Date: 20050328
  Serious: Yes (Life-Threatening)
  Sender: FDA-Public Use
  Company Number: None

PATIENT
  Age: 16 Year
  Sex: Male
  Weight: 24.0406 kg

DRUGS (2)
  1. TOPAMAX [Suspect]
     Indication: EPILEPSY
     Dosage: 25MG  TID ORAL
     Route: 048
     Dates: start: 20041101, end: 20041214
  2. MYSOLINE [Concomitant]

REACTIONS (2)
  - CONVULSION [None]
  - PYREXIA [None]
